FAERS Safety Report 21098026 (Version 1)
Quarter: 2022Q3

REPORT INFORMATION
  Report Type: Spontaneous
  Country: CN (occurrence: CN)
  Receive Date: 20220719
  Receipt Date: 20220719
  Transmission Date: 20221027
  Serious: Yes (Hospitalization)
  Sender: FDA-Public Use
  Company Number: None

PATIENT
  Age: 63 Year
  Sex: Female
  Weight: 43 kg

DRUGS (8)
  1. CYCLOPHOSPHAMIDE [Suspect]
     Active Substance: CYCLOPHOSPHAMIDE
     Indication: Amyloidosis
     Dosage: 0.4 G, QD, D1-2, CYCLOPHOSPHAMIDE (0.4G) AND SODIUM CHLORIDE INJECTION (250ML)
     Route: 041
     Dates: start: 20220628, end: 20220629
  2. DEXAMETHASONE SODIUM PHOSPHATE [Suspect]
     Active Substance: DEXAMETHASONE SODIUM PHOSPHATE
     Indication: Amyloidosis
     Dosage: 40 MG, QD, D1-D2
     Route: 042
     Dates: start: 20220628, end: 20220629
  3. DEXAMETHASONE SODIUM PHOSPHATE [Suspect]
     Active Substance: DEXAMETHASONE SODIUM PHOSPHATE
     Dosage: 40 ML, QD, D8-D9, DOSE RE INTRODUCED
     Route: 042
     Dates: start: 20220705, end: 20220706
  4. BORTEZOMIB [Suspect]
     Active Substance: BORTEZOMIB
     Indication: Amyloidosis
     Dosage: 3.5 MG, 1X A WEEK, D1-D8, BORTEZOMIB FOR INJECTION (3.5MG) AND STERILE WATER FOR INJECTION (250ML)
     Route: 058
     Dates: start: 20220628, end: 20220704
  5. BORTEZOMIB [Suspect]
     Active Substance: BORTEZOMIB
     Dosage: 3.5 MG, 1X A WEEK, BORTEZOMIB FOR INJECTION (3.5MG) AND STERILE WATER FOR INJECTION (250ML)
     Route: 058
     Dates: start: 20220705
  6. SODIUM CHLORIDE [Suspect]
     Active Substance: SODIUM CHLORIDE
     Indication: Medication dilution
     Dosage: 250 ML ONCE DAILY, CYCLOPHOSPHAMIDE (0.4G) AND SODIUM CHLORIDE INJECTION (250ML)
     Route: 041
     Dates: start: 20220628, end: 20220629
  7. STERILE WATER [Suspect]
     Active Substance: WATER
     Indication: Medication dilution
     Dosage: 2.1 ML, 1X A WEEK, BORTEZOMIB FOR INJECTION (3.5MG) AND STERILE WATER FOR INJECTION (250ML)
     Route: 058
     Dates: start: 20220628, end: 20220704
  8. STERILE WATER [Suspect]
     Active Substance: WATER
     Dosage: 2.1 ML, 1X A WEEK, BORTEZOMIB FOR INJECTION (3.5MG) AND STERILE WATER FOR INJECTION (250ML)
     Route: 058
     Dates: start: 20220705

REACTIONS (7)
  - Euphoric mood [Recovering/Resolving]
  - Insomnia [Recovering/Resolving]
  - Oedema peripheral [Recovering/Resolving]
  - Oedema [Recovering/Resolving]
  - Psychomotor hyperactivity [Unknown]
  - Urine output decreased [Recovered/Resolved]
  - Urine output decreased [Recovered/Resolved]

NARRATIVE: CASE EVENT DATE: 20220601
